FAERS Safety Report 7286182-5 (Version None)
Quarter: 2011Q1

REPORT INFORMATION
  Report Type: 
  Country: None (occurrence: None)
  Receive Date: 20110210
  Receipt Date: 20110131
  Transmission Date: 20110831
  Serious: Yes (Other)
  Sender: FDA-Public Use
  Company Number: PHHY2011FR08451

PATIENT
  Age: 67 Year
  Sex: Female

DRUGS (5)
  1. RASILEZ [Suspect]
     Dosage: 300 MG, QD
     Route: 048
  2. ASPIRIN [Concomitant]
     Dosage: UNK
  3. RASILEZ [Suspect]
     Indication: HYPERTENSION
     Dosage: 150 MG, QD FOR 1 MONTH
     Route: 048
  4. PARACETAMOL [Concomitant]
     Dosage: UNK
  5. AMLOR [Concomitant]
     Dosage: UNK

REACTIONS (7)
  - ARTHRALGIA [None]
  - ASTHENIA [None]
  - APATHY [None]
  - MUSCULOSKELETAL STIFFNESS [None]
  - DEPRESSION [None]
  - MOVEMENT DISORDER [None]
  - MORBID THOUGHTS [None]
